FAERS Safety Report 13769795 (Version 3)
Quarter: 2018Q2

REPORT INFORMATION
  Report Type: Report from Study
  Country: BR (occurrence: BR)
  Receive Date: 20170719
  Receipt Date: 20180629
  Transmission Date: 20180711
  Serious: Yes (Hospitalization, Other)
  Sender: FDA-Public Use
  Company Number: PHHY2017BR104560

PATIENT
  Sex: Male
  Weight: 27.9 kg

DRUGS (6)
  1. TYLEX [Concomitant]
     Active Substance: ACETAMINOPHEN\CODEINE PHOSPHATE
     Indication: PRODUCT USED FOR UNKNOWN INDICATION
     Dosage: UNK
     Route: 065
  2. FOLIC ACID. [Concomitant]
     Active Substance: FOLIC ACID
     Indication: SICKLE CELL ANAEMIA
     Dosage: 1 DF A DAY/3 X A WEEK
     Route: 048
  3. AMOXICILLIN. [Concomitant]
     Active Substance: AMOXICILLIN
     Indication: PRODUCT USED FOR UNKNOWN INDICATION
     Route: 065
  4. HYDREA [Concomitant]
     Active Substance: HYDROXYUREA
     Indication: SICKLE CELL ANAEMIA
     Dosage: 1 DF A DAY/ 3 X A WEEK, 2 TABLETS A DAY/ 4 X A WEEK
     Route: 048
  5. EXJADE [Suspect]
     Active Substance: DEFERASIROX
     Indication: SICKLE CELL ANAEMIA
     Dosage: 750 MG, (500 MG/ 4 X IN THE WEK, 1 TABLET OF 250 MG/ 3 XIN THE WEEK)
     Route: 048
     Dates: start: 2017
  6. EXJADE [Suspect]
     Active Substance: DEFERASIROX
     Dosage: 650 MG, QD
     Route: 048
     Dates: start: 2017

REACTIONS (13)
  - Skin discolouration [Unknown]
  - Pain [Recovering/Resolving]
  - Moyamoya disease [Unknown]
  - Epistaxis [Unknown]
  - Malaise [Recovering/Resolving]
  - Sneezing [Unknown]
  - Bone pain [Unknown]
  - Serum ferritin increased [Recovering/Resolving]
  - Ill-defined disorder [Recovering/Resolving]
  - Hypersensitivity [Unknown]
  - Haemoglobin decreased [Recovering/Resolving]
  - Oropharyngeal pain [Recovering/Resolving]
  - Pyrexia [Unknown]
